FAERS Safety Report 10254218 (Version 1)
Quarter: 2014Q2

REPORT INFORMATION
  Report Type: Spontaneous
  Country: BR (occurrence: BR)
  Receive Date: 20140624
  Receipt Date: 20140624
  Transmission Date: 20141212
  Serious: Yes (Life-Threatening, Other)
  Sender: FDA-Public Use
  Company Number: BR-AMGEN INC.-BRASP2014046723

PATIENT
  Age: 47 Year
  Sex: Female
  Weight: 63 kg

DRUGS (2)
  1. ENBREL [Suspect]
     Indication: RHEUMATOID ARTHRITIS
     Dosage: 50 MG, ONCE WEEKLY
     Route: 058
     Dates: start: 20131002
  2. CALCIUM [Concomitant]
     Dosage: ONCE DAILY
     Route: 048

REACTIONS (12)
  - Apparent death [Unknown]
  - Arrhythmia [Unknown]
  - Pallor [Unknown]
  - Blood pressure decreased [Unknown]
  - Malaise [Unknown]
  - Bone disorder [Unknown]
  - Pain [Unknown]
  - Epistaxis [Unknown]
  - Mouth haemorrhage [Unknown]
  - Burning sensation [Unknown]
  - Diarrhoea [Unknown]
  - Weight decreased [Unknown]
